FAERS Safety Report 9796026 (Version 2)
Quarter: 2014Q1

REPORT INFORMATION
  Report Type: Report from Study
  Country: US (occurrence: US)
  Receive Date: 20140103
  Receipt Date: 20140113
  Transmission Date: 20141002
  Serious: Yes (Hospitalization)
  Sender: FDA-Public Use
  Company Number: US-UCBSA-107048

PATIENT
  Age: 77 Year
  Sex: Female
  Weight: 119.5 kg

DRUGS (10)
  1. CERTOLIZUMAB PEGOL [Suspect]
     Indication: RHEUMATOID ARTHRITIS
     Dosage: NO OF DOSES RECEIEVD: 3
     Route: 058
     Dates: start: 20130430, end: 20130514
  2. FOSAMAX [Concomitant]
     Indication: OSTEOPOROSIS
     Route: 048
  3. HYDROCHLOROTHIAZIDE [Concomitant]
     Dosage: 50 MG DAILY
  4. TRAMADOL [Concomitant]
     Indication: PAIN
     Route: 048
  5. PREDNISONE [Concomitant]
     Dosage: 20 MG DAILY
  6. OMEPRAZOLE [Concomitant]
     Dosage: 20 MG DAILY
  7. ASPIRIN [Concomitant]
     Dosage: 81 MG DAILY
  8. LOVASTATIN [Concomitant]
     Dosage: 40 MG DAILY
  9. LISINOPRIL [Concomitant]
     Dosage: 40 MG DAILY
  10. ATENOLOL [Concomitant]
     Dosage: 50 MG DAILY

REACTIONS (1)
  - Central nervous system lymphoma [Not Recovered/Not Resolved]
